FAERS Safety Report 11443103 (Version 4)
Quarter: 2015Q4

REPORT INFORMATION
  Report Type: Report from Study
  Country: US (occurrence: US)
  Receive Date: 20150901
  Receipt Date: 20151021
  Transmission Date: 20160304
  Serious: Yes (Death, Life-Threatening, Hospitalization, Other)
  Sender: FDA-Public Use
  Company Number: US-ABBVIE-15P-163-1451053-00

PATIENT
  Age: 66 Year
  Sex: Male
  Weight: 73 kg

DRUGS (20)
  1. DASABUVIR [Suspect]
     Active Substance: DASABUVIR
     Indication: HEPATITIS C
     Route: 048
     Dates: start: 20150819, end: 20150822
  2. TACROLIMUS. [Concomitant]
     Active Substance: TACROLIMUS
     Route: 048
     Dates: start: 20150818, end: 20150818
  3. CALCITRIOL. [Concomitant]
     Active Substance: CALCITRIOL
     Indication: ROUTINE HEALTH MAINTENANCE
     Route: 048
     Dates: start: 20131203, end: 20150825
  4. MYCOPHENOLIC ACID. [Concomitant]
     Active Substance: MYCOPHENOLIC ACID
     Indication: PROPHYLAXIS AGAINST TRANSPLANT REJECTION
     Route: 048
     Dates: start: 20131112, end: 20150825
  5. OMBITASVIR/PARITAPREVIR/RITONAVIR [Suspect]
     Active Substance: OMBITASVIR\PARITAPREVIR\RITONAVIR
     Indication: HEPATITIS C
     Dosage: 150/100/25 MG QD
     Route: 048
     Dates: start: 20150819, end: 20150822
  6. LAMIVUDINE. [Concomitant]
     Active Substance: LAMIVUDINE
     Indication: RENAL TRANSPLANT
  7. TACROLIMUS. [Concomitant]
     Active Substance: TACROLIMUS
     Indication: IMMUNOSUPPRESSANT DRUG THERAPY
     Route: 048
     Dates: start: 20131112, end: 20150817
  8. TACROLIMUS. [Concomitant]
     Active Substance: TACROLIMUS
     Route: 048
     Dates: start: 20150823, end: 20150823
  9. LANTUS [Concomitant]
     Active Substance: INSULIN GLARGINE
     Indication: DIABETES MELLITUS
     Dosage: 2500 U/ML QD
     Route: 058
     Dates: start: 20110211, end: 20150825
  10. NIFEDIPINE. [Concomitant]
     Active Substance: NIFEDIPINE
     Indication: HYPERTENSION
     Route: 048
     Dates: start: 20110211, end: 20150825
  11. RIBAVIRIN. [Suspect]
     Active Substance: RIBAVIRIN
     Indication: HEPATITIS C
     Route: 048
     Dates: start: 20150819, end: 20150822
  12. TACROLIMUS. [Concomitant]
     Active Substance: TACROLIMUS
     Route: 048
     Dates: start: 20150821, end: 20150822
  13. NOVOLOG [Concomitant]
     Active Substance: INSULIN ASPART
     Indication: DIABETES MELLITUS
     Dosage: 300-500 U/ML TID
     Route: 058
     Dates: start: 20110211, end: 20150825
  14. TAMSULOSIN [Concomitant]
     Active Substance: TAMSULOSIN
     Indication: PROPHYLAXIS
     Route: 048
     Dates: start: 20131118, end: 20150819
  15. TAMSULOSIN [Concomitant]
     Active Substance: TAMSULOSIN
     Indication: URINARY TRACT DISORDER
     Route: 048
     Dates: start: 20150821, end: 20150825
  16. CALCITRIOL. [Concomitant]
     Active Substance: CALCITRIOL
     Indication: RENAL TRANSPLANT
  17. LAMIVUDINE. [Concomitant]
     Active Substance: LAMIVUDINE
     Indication: ROUTINE HEALTH MAINTENANCE
     Route: 048
     Dates: start: 20140123, end: 20150825
  18. SODIUM BICARBONATE. [Concomitant]
     Active Substance: SODIUM BICARBONATE
     Indication: ROUTINE HEALTH MAINTENANCE
     Route: 048
     Dates: start: 20131203, end: 20150825
  19. TAMSULOSIN [Concomitant]
     Active Substance: TAMSULOSIN
     Indication: RENAL TRANSPLANT
  20. CARVEDIOL [Concomitant]
     Active Substance: CARVEDILOL
     Indication: HYPERTENSION
     Route: 048
     Dates: start: 20110211, end: 20150825

REACTIONS (1)
  - Overdose [Fatal]

NARRATIVE: CASE EVENT DATE: 20150822
